FAERS Safety Report 9201712 (Version 5)
Quarter: 2013Q4

REPORT INFORMATION
  Report Type: Report from Study
  Country: JP (occurrence: JP)
  Receive Date: 20130401
  Receipt Date: 20131205
  Transmission Date: 20140711
  Serious: Yes (Death, Life-Threatening)
  Sender: FDA-Public Use
  Company Number: JP-PFIZER INC-2013099874

PATIENT
  Age: 66 Year
  Sex: Male
  Weight: 50 kg

DRUGS (16)
  1. ADRIACIN [Suspect]
     Indication: ADULT T-CELL LYMPHOMA/LEUKAEMIA
     Dosage: UNK
     Dates: start: 20130126, end: 20130127
  2. KW-0761 [Suspect]
     Indication: ADULT T-CELL LYMPHOMA/LEUKAEMIA
     Dosage: 1 MG/KG, 1X/DAY
     Route: 041
     Dates: start: 20130204, end: 20130204
  3. ETOPOSIDE [Suspect]
     Dosage: UNK
     Dates: start: 20130126, end: 20130127
  4. VINCRISTINE [Suspect]
     Dosage: UNK
     Dates: start: 20130126, end: 20130127
  5. CYCLOPHOSPHAMIDE [Suspect]
     Dosage: UNK
     Dates: start: 20130126, end: 20130127
  6. PREDONINE [Suspect]
     Dosage: UNK
     Route: 048
     Dates: start: 20130126, end: 20130127
  7. DIPHENHYDRAMINE HYDROCHLORIDE [Concomitant]
     Dosage: UNK
     Dates: start: 20130204, end: 20130204
  8. ACETAMINOPHEN [Concomitant]
     Dosage: UNK
     Dates: start: 20130204, end: 20130204
  9. SOLU-CORTEF [Concomitant]
     Dosage: UNK
     Dates: start: 20130204, end: 20130204
  10. MAXIPIME [Concomitant]
     Dosage: UNK
     Dates: start: 20130205, end: 20130214
  11. VICCLOX [Concomitant]
     Dosage: UNK
     Dates: end: 20130209
  12. RASBURICASE [Concomitant]
     Dosage: UNK
     Dates: end: 20130204
  13. GRAN [Concomitant]
     Dosage: UNK
     Dates: end: 20130208
  14. ORGARAN [Concomitant]
     Dosage: UNK
     Dates: start: 20130205, end: 20130212
  15. TAKEPRON [Concomitant]
     Dosage: UNK
     Route: 048
     Dates: end: 20130215
  16. LASIX [Concomitant]
     Dosage: UNK
     Route: 048
     Dates: end: 20130212

REACTIONS (5)
  - Renal disorder [Fatal]
  - Disease progression [Fatal]
  - Adult T-cell lymphoma/leukaemia [Fatal]
  - Febrile neutropenia [Not Recovered/Not Resolved]
  - Infusion related reaction [Recovered/Resolved]
